FAERS Safety Report 20131898 (Version 1)
Quarter: 2021Q4

REPORT INFORMATION
  Report Type: Spontaneous
  Country: FR (occurrence: FR)
  Receive Date: 20211130
  Receipt Date: 20211130
  Transmission Date: 20220303
  Serious: Yes (Hospitalization)
  Sender: FDA-Public Use
  Company Number: FR-MYLANLABS-2021M1088753

PATIENT
  Age: 69 Year
  Sex: Female

DRUGS (1)
  1. FLUOROURACIL [Suspect]
     Active Substance: FLUOROURACIL
     Indication: Colon cancer
     Dosage: 2800 MILLIGRAM/SQ. METER
     Route: 042

REACTIONS (1)
  - Toxic leukoencephalopathy [Recovered/Resolved]
